FAERS Safety Report 6395667-5 (Version None)
Quarter: 2009Q4

REPORT INFORMATION
  Report Type: 
  Country: None (occurrence: None)
  Receive Date: 20091006
  Receipt Date: 20090922
  Transmission Date: 20100525
  Serious: Yes (Other)
  Sender: FDA-Public Use
  Company Number: 8052397

PATIENT
  Age: 21 Year
  Sex: Female

DRUGS (1)
  1. CIMZIA [Suspect]
     Indication: CROHN'S DISEASE
     Dosage: 200 MG 1/2W  SC
     Route: 058
     Dates: start: 20090123

REACTIONS (4)
  - CYST [None]
  - INJECTION SITE DERMATITIS [None]
  - PHARYNGITIS STREPTOCOCCAL [None]
  - SINUSITIS [None]
